FAERS Safety Report 7236726-4 (Version None)
Quarter: 2011Q1

REPORT INFORMATION
  Report Type: 
  Country: None (occurrence: None)
  Receive Date: 20110120
  Receipt Date: 20110117
  Transmission Date: 20110831
  Serious: Yes (Other)
  Sender: FDA-Public Use
  Company Number: GB-NAPPMUNDI-GBR-2011-0007616

PATIENT
  Sex: Female

DRUGS (2)
  1. BENZODIAZEPINE DERIVATIVES [Concomitant]
  2. BUTRANS [Suspect]
     Indication: PRODUCT USED FOR UNKNOWN INDICATION
     Dosage: 10 MCG, Q1H
     Route: 062

REACTIONS (3)
  - HYPERTENSION [None]
  - BLOOD DISORDER [None]
  - DYSPNOEA [None]
